FAERS Safety Report 5555713-5 (Version None)
Quarter: 2007Q4

REPORT INFORMATION
  Report Type: 
  Country: None (occurrence: None)
  Receive Date: 20071213
  Receipt Date: 20071203
  Transmission Date: 20080405
  Serious: Yes (Other)
  Sender: FDA-Public Use
  Company Number: US-PFIZER INC-2007031503

PATIENT
  Sex: Female
  Weight: 78.9 kg

DRUGS (18)
  1. CHANTIX [Suspect]
     Indication: SMOKING CESSATION THERAPY
     Route: 048
     Dates: start: 20070329, end: 20071127
  2. MORPHINE [Concomitant]
  3. ZIAC [Concomitant]
  4. ACIPHEX [Concomitant]
  5. FEMHRT [Concomitant]
  6. ZYRTEC [Concomitant]
  7. ADVAIR DISKUS 100/50 [Concomitant]
  8. NASACORT [Concomitant]
  9. XANAX [Concomitant]
  10. FAMVIR [Concomitant]
  11. STADOL [Concomitant]
     Route: 045
  12. MECLIZINE [Concomitant]
  13. ALBUTEROL [Concomitant]
  14. XOPENEX [Concomitant]
  15. OMNICUR [Concomitant]
  16. LACTULOSE [Concomitant]
  17. LIPITOR [Concomitant]
  18. ACETYLSALICYLIC ACID SRT [Concomitant]

REACTIONS (10)
  - CHEST DISCOMFORT [None]
  - DRUG INEFFECTIVE [None]
  - DYSGEUSIA [None]
  - HEADACHE [None]
  - HERPES VIRUS INFECTION [None]
  - HYPERTENSION [None]
  - NAUSEA [None]
  - PALPITATIONS [None]
  - PHARMACEUTICAL PRODUCT COMPLAINT [None]
  - PRURITUS [None]
